FAERS Safety Report 5098431-2 (Version None)
Quarter: 2006Q3

REPORT INFORMATION
  Report Type: 
  Country: None (occurrence: None)
  Receive Date: 20060907
  Receipt Date: 20060531
  Transmission Date: 20061208
  Serious: Yes (Hospitalization)
  Sender: FDA-Public Use
  Company Number: US-BAYER-200613695BWH

PATIENT
  Age: 55 Year
  Sex: Female
  Weight: 60 kg

DRUGS (24)
  1. AVELOX [Suspect]
     Indication: BRONCHIECTASIS
     Dosage: TOTAL DAILY DOSE: 400 MG  UNIT DOSE: 400 MG
     Route: 048
     Dates: start: 20060101
  2. AVELOX [Suspect]
     Dosage: TOTAL DAILY DOSE: 400 MG  UNIT DOSE: 400 MG
     Route: 048
     Dates: start: 20060426, end: 20060505
  3. AVELOX [Suspect]
     Dosage: TOTAL DAILY DOSE: 400 MG  UNIT DOSE: 400 MG
     Route: 048
     Dates: start: 20060426
  4. LEVOTHROID [Concomitant]
  5. FOSAMAX [Concomitant]
  6. PULMICORT [Concomitant]
  7. LEVAQUIN [Concomitant]
     Route: 065
  8. TEQUIN [Concomitant]
     Route: 065
  9. ALBUTEROL SULFATE HFA [Concomitant]
     Route: 055
  10. CITALOPRAM [Concomitant]
     Dosage: TOTAL DAILY DOSE: 20 MG
     Route: 048
  11. LORAZEPAM [Concomitant]
     Dosage: TOTAL DAILY DOSE: 1.5 MG
     Route: 048
  12. PROVENTIL-HFA [Concomitant]
     Dosage: TOTAL DAILY DOSE: 432 ?G
     Route: 055
  13. ALBUTEROL SULFATE [Concomitant]
     Dosage: TOTAL DAILY DOSE: 2.5 MG
     Route: 048
  14. MULTI-VITAMIN [Concomitant]
     Route: 048
  15. SODIUM CHLORIDE [Concomitant]
  16. ACETAMINOPHEN [Concomitant]
     Dosage: TOTAL DAILY DOSE: 3900 MG  UNIT DOSE: 325 MG
     Route: 048
  17. MAALOX FAST BLOCKER [Concomitant]
     Route: 048
  18. PROTONIX [Concomitant]
     Dosage: TOTAL DAILY DOSE: 40 MG
     Route: 048
  19. BENADRYL [Concomitant]
     Dosage: TOTAL DAILY DOSE: 100 MG
     Route: 048
  20. ZOFRAN [Concomitant]
     Dosage: TOTAL DAILY DOSE: 16 MG
     Route: 042
  21. PULMICORT [Concomitant]
     Route: 055
  22. METHYLPREDNISOLONE [Concomitant]
     Dosage: TOTAL DAILY DOSE: 80 MG
     Route: 042
  23. ATROVENT [Concomitant]
     Route: 055
  24. AMBIEN [Concomitant]
     Dosage: TOTAL DAILY DOSE: 10 MG
     Route: 048

REACTIONS (45)
  - ACTIVATED PARTIAL THROMBOPLASTIN TIME PROLONGED [None]
  - ADVERSE DRUG REACTION [None]
  - ANOREXIA [None]
  - ANXIETY [None]
  - ASTHENIA [None]
  - BACTERIAL INFECTION [None]
  - BLOOD ALKALINE PHOSPHATASE INCREASED [None]
  - BLOOD CHLORIDE DECREASED [None]
  - BLOOD GLUCOSE INCREASED [None]
  - BLOOD PRESSURE DIASTOLIC DECREASED [None]
  - BLOOD SODIUM DECREASED [None]
  - BODY TEMPERATURE DECREASED [None]
  - BRONCHIECTASIS [None]
  - CHILLS [None]
  - COLD SWEAT [None]
  - CONSTIPATION [None]
  - DEHYDRATION [None]
  - DIZZINESS [None]
  - DRY THROAT [None]
  - ERUCTATION [None]
  - ERYTHEMA INFECTIOSUM [None]
  - FATIGUE [None]
  - FEELING ABNORMAL [None]
  - HEPATIC FUNCTION ABNORMAL [None]
  - HYPOKALAEMIA [None]
  - HYPONATRAEMIA [None]
  - LYMPHOCYTE COUNT DECREASED [None]
  - MONOCYTE COUNT DECREASED [None]
  - MYALGIA [None]
  - NAIL DISCOLOURATION [None]
  - NASOPHARYNGEAL DISORDER [None]
  - NAUSEA [None]
  - NEUTROPHIL COUNT INCREASED [None]
  - NEUTROPHIL PERCENTAGE INCREASED [None]
  - PHARYNGEAL ERYTHEMA [None]
  - PROTHROMBIN TIME PROLONGED [None]
  - PYREXIA [None]
  - RASH [None]
  - RED CELL DISTRIBUTION WIDTH INCREASED [None]
  - RENAL IMPAIRMENT [None]
  - RESPIRATORY RATE INCREASED [None]
  - SINUSITIS [None]
  - TREMOR [None]
  - VIRAL RASH [None]
  - WHITE BLOOD CELL COUNT INCREASED [None]
